FAERS Safety Report 5883239-8 (Version None)
Quarter: 2008Q3

REPORT INFORMATION
  Report Type: 
  Country: None (occurrence: None)
  Receive Date: 20080915
  Receipt Date: 20080905
  Transmission Date: 20090109
  Serious: Yes (Other)
  Sender: FDA-Public Use
  Company Number: BR-JNJFOC-20080901727

PATIENT
  Sex: Male
  Weight: 70 kg

DRUGS (1)
  1. HALDOL [Suspect]
     Indication: PSYCHOMOTOR HYPERACTIVITY
     Route: 030

REACTIONS (1)
  - APNOEA [None]
